FAERS Safety Report 7095102-8 (Version None)
Quarter: 2010Q4

REPORT INFORMATION
  Report Type: 
  Country: None (occurrence: None)
  Receive Date: 20101111
  Receipt Date: 20101109
  Transmission Date: 20110411
  Serious: No
  Sender: FDA-Public Use
  Company Number: US-BIOGENIDEC-2010BI039114

PATIENT
  Age: 51 Year
  Sex: Female
  Weight: 40 kg

DRUGS (5)
  1. TYSABRI [Suspect]
     Indication: MULTIPLE SCLEROSIS
     Route: 042
     Dates: start: 20081001
  2. MORPHINE [Concomitant]
     Indication: PAIN IN EXTREMITY
  3. OXYCODONE HCL [Concomitant]
     Indication: PAIN IN EXTREMITY
  4. SOLU-MEDROL [Concomitant]
     Indication: PAIN IN EXTREMITY
     Dates: start: 20101102
  5. SOLU-MEDROL [Concomitant]
     Indication: EYE PAIN
     Dates: start: 20101102

REACTIONS (3)
  - ANAEMIA [None]
  - CATARACT [None]
  - CYTOLOGY ABNORMAL [None]
